FAERS Safety Report 15606478 (Version 1)
Quarter: 2018Q4

REPORT INFORMATION
  Report Type: Other
  Country: US (occurrence: US)
  Receive Date: 20181112
  Receipt Date: 20181112
  Transmission Date: 20190205
  Serious: Yes (Other)
  Sender: FDA-Public Use
  Company Number: US-CHANGZHOU PHARMACEUTICAL FACTORY-2058716

PATIENT
  Age: 40 Year
  Sex: Male

DRUGS (1)
  1. ROSUVASTATIN CALCIUM. [Suspect]
     Active Substance: ROSUVASTATIN CALCIUM
     Indication: LIPIDS ABNORMAL
     Route: 065

REACTIONS (2)
  - Tendon disorder [Unknown]
  - Tendon rupture [Not Recovered/Not Resolved]
